FAERS Safety Report 16237248 (Version 2)
Quarter: 2019Q3

REPORT INFORMATION
  Report Type: Spontaneous
  Country: JP (occurrence: JP)
  Receive Date: 20190425
  Receipt Date: 20190802
  Transmission Date: 20191004
  Serious: Yes (Other)
  Sender: FDA-Public Use
  Company Number: JP-SUN PHARMACEUTICAL INDUSTRIES LTD-2019RR-206354

PATIENT
  Age: 52 Year
  Sex: Female
  Weight: 49 kg

DRUGS (9)
  1. PREDNISOLONE. [Interacting]
     Active Substance: PREDNISOLONE
     Indication: BRAIN OEDEMA
     Dosage: 5 MILLIGRAM, BID
     Route: 048
     Dates: start: 20120603, end: 20121106
  2. LANSOPRAZOLE. [Suspect]
     Active Substance: LANSOPRAZOLE
     Indication: ABDOMINAL DISCOMFORT
     Dosage: 30 MILLIGRAM, QD
     Route: 048
     Dates: start: 20110727, end: 20121030
  3. PROBUCOL [Concomitant]
     Active Substance: PROBUCOL
     Indication: HYPERLIPIDAEMIA
     Dosage: 250 MILLIGRAM, BID
     Route: 048
  4. PREDNISOLONE. [Interacting]
     Active Substance: PREDNISOLONE
     Indication: EPILEPSY
  5. REBAMIPIDE [Concomitant]
     Active Substance: REBAMIPIDE
     Indication: ABDOMINAL DISCOMFORT
     Dosage: 100 MILLIGRAM, TID
     Route: 048
  6. TEGRETOL [Interacting]
     Active Substance: CARBAMAZEPINE
     Indication: EPILEPSY
     Dosage: 100 MILLIGRAM, BID
     Route: 048
     Dates: start: 20120529, end: 20121030
  7. EVEROLIMUS. [Interacting]
     Active Substance: EVEROLIMUS
     Indication: RENAL CANCER
     Dosage: 10 MILLIGRAM, QD
     Route: 048
     Dates: start: 20120607, end: 20130328
  8. DOMPERIDONE [Concomitant]
     Active Substance: DOMPERIDONE
     Indication: ABDOMINAL DISCOMFORT
     Dosage: 10 MILLIGRAM, TID
     Route: 048
  9. FERROMIA [Concomitant]
     Active Substance: SODIUM FERROUS CITRATE
     Indication: ANAEMIA
     Dosage: 50 MILLIGRAM, BID
     Route: 048

REACTIONS (2)
  - Adverse event [Unknown]
  - Drug interaction [Recovered/Resolved]

NARRATIVE: CASE EVENT DATE: 20120620
